FAERS Safety Report 11779426 (Version 1)
Quarter: 2015Q4

REPORT INFORMATION
  Report Type: Spontaneous
  Country: US (occurrence: US)
  Receive Date: 20151125
  Receipt Date: 20151125
  Transmission Date: 20160304
  Serious: Yes (Congenital Anomaly, Other)
  Sender: FDA-Public Use
  Company Number: US-ABBVIE-15P-163-1506084-00

PATIENT
  Sex: Male

DRUGS (2)
  1. HUMIRA [Suspect]
     Active Substance: ADALIMUMAB
     Indication: MATERNAL EXPOSURE TIMING UNSPECIFIED
     Route: 064
  2. HUMIRA [Suspect]
     Active Substance: ADALIMUMAB
     Route: 063

REACTIONS (12)
  - Blood homocysteine increased [Not Recovered/Not Resolved]
  - Umbilical cord around neck [Recovered/Resolved]
  - Respiratory tract congestion [Recovered/Resolved]
  - Dacryostenosis congenital [Recovered/Resolved]
  - Heart rate decreased [Recovered/Resolved]
  - Trisomy 21 [Not Recovered/Not Resolved]
  - Hypotonia [Not Recovered/Not Resolved]
  - Exposure during breast feeding [Unknown]
  - Middle ear effusion [Recovered/Resolved]
  - Foetal exposure during pregnancy [Unknown]
  - Congenital choroid plexus cyst [Recovered/Resolved]
  - Hypoacusis [Recovered/Resolved]

NARRATIVE: CASE EVENT DATE: 2013
